FAERS Safety Report 7748941-1 (Version None)
Quarter: 2011Q3

REPORT INFORMATION
  Report Type: 
  Country: None (occurrence: None)
  Receive Date: 20110913
  Receipt Date: 20110913
  Transmission Date: 20111222
  Serious: Yes (Hospitalization)
  Sender: FDA-Public Use
  Company Number: None

PATIENT
  Age: 62 Year
  Sex: Male
  Weight: 38.5557 kg

DRUGS (1)
  1. SIMVASTATIN [Suspect]
     Indication: HYPERLIPIDAEMIA
     Dosage: 20 MG EVERY DAY PO
     Route: 048
     Dates: start: 20110303, end: 20110428

REACTIONS (3)
  - RHABDOMYOLYSIS [None]
  - BLOOD CREATINE PHOSPHOKINASE INCREASED [None]
  - MENTAL STATUS CHANGES [None]
